FAERS Safety Report 7952461-9 (Version None)
Quarter: 2011Q4

REPORT INFORMATION
  Report Type: 
  Country: None (occurrence: None)
  Receive Date: 20111201
  Receipt Date: 20111122
  Transmission Date: 20120403
  Serious: Yes (Other)
  Sender: FDA-Public Use
  Company Number: US-ASTRAZENECA-2011SE71178

PATIENT
  Age: 53 Year
  Sex: Female

DRUGS (5)
  1. SEROQUEL [Suspect]
     Route: 048
  2. XANEX [Concomitant]
  3. WATER PILL [Concomitant]
  4. PAIN PILL FOR HER ARM [Concomitant]
  5. PAXIL [Concomitant]

REACTIONS (4)
  - HUMERUS FRACTURE [None]
  - FALL [None]
  - SOFT TISSUE INJURY [None]
  - OEDEMA PERIPHERAL [None]
